FAERS Safety Report 5578307-4 (Version None)
Quarter: 2007Q4

REPORT INFORMATION
  Report Type: 
  Country: None (occurrence: None)
  Receive Date: 20071130
  Receipt Date: 20070622
  Transmission Date: 20080405
  Serious: No
  Sender: FDA-Public Use
  Company Number: US200707000373

PATIENT
  Age: 63 Year
  Sex: Female

DRUGS (4)
  1. BYETTA [Suspect]
     Indication: TYPE 2 DIABETES MELLITUS
     Dosage: 5 UG, 2/D, SUBCUTANEOUS ; 5 UG, 4/D, SUBCUTANEOUS
     Route: 058
     Dates: start: 20070403, end: 20070501
  2. BYETTA [Suspect]
     Indication: TYPE 2 DIABETES MELLITUS
     Dosage: 5 UG, 2/D, SUBCUTANEOUS ; 5 UG, 4/D, SUBCUTANEOUS
     Route: 058
     Dates: start: 20070502
  3. METFORMIN HCL [Concomitant]
  4. GLYBURIDE [Concomitant]

REACTIONS (5)
  - CYSTITIS [None]
  - DYSURIA [None]
  - VAGINAL CANDIDIASIS [None]
  - VAGINAL ERYTHEMA [None]
  - VAGINAL PAIN [None]
